FAERS Safety Report 18171490 (Version 4)
Quarter: 2020Q4

REPORT INFORMATION
  Report Type: Report from Study
  Country: ES (occurrence: ES)
  Receive Date: 20200819
  Receipt Date: 20201209
  Transmission Date: 20210113
  Serious: Yes (Life-Threatening, Hospitalization, Other)
  Sender: FDA-Public Use
  Company Number: ES-MORPHOSYS US-2020-MOR000550-ES

PATIENT
  Age: 40 Year
  Sex: Male
  Weight: 107 kg

DRUGS (15)
  1. TAFASITAMAB [Suspect]
     Active Substance: TAFASITAMAB
     Indication: DIFFUSE LARGE B-CELL LYMPHOMA
     Dosage: 12 MILLIGRAM/KILOGRAM, SINGLE
     Route: 042
     Dates: start: 20200608, end: 20200608
  2. TAFASITAMAB [Suspect]
     Active Substance: TAFASITAMAB
     Dosage: 12 MILLIGRAM/KILOGRAM, SINGLE
     Route: 042
     Dates: start: 20200701, end: 20200701
  3. R-CHOP [Suspect]
     Active Substance: CYCLOPHOSPHAMIDE\DOXORUBICIN\PREDNISONE\RITUXIMAB\VINCRISTINE
     Indication: DIFFUSE LARGE B-CELL LYMPHOMA
     Dosage: UNK
     Route: 042
     Dates: start: 20200608
  4. RASBURICASE [Concomitant]
     Active Substance: RASBURICASE
     Indication: PROPHYLAXIS
     Dosage: 21.4 MILLIGRAM, QD
     Route: 042
     Dates: start: 20200602, end: 20200606
  5. SODIUM BICARBONATE. [Concomitant]
     Active Substance: SODIUM BICARBONATE
     Indication: TUMOUR LYSIS SYNDROME
     Dosage: 40 MILLIEQUIVALENT, EVERY 24 HOURS
     Route: 042
     Dates: start: 20200603, end: 20200611
  6. LENALIDOMIDE [Suspect]
     Active Substance: LENALIDOMIDE
     Indication: DIFFUSE LARGE B-CELL LYMPHOMA
     Dosage: 25 MILLIGRAM, QD
     Route: 048
     Dates: start: 20200608, end: 20200617
  7. NYSTATINA [Concomitant]
     Indication: DENTAL DISORDER PROPHYLAXIS
     Dosage: 1 RINSE, TID
     Route: 048
     Dates: start: 20200603, end: 20201014
  8. LENALIDOMIDE [Suspect]
     Active Substance: LENALIDOMIDE
     Dosage: 25 MILLIGRAM, QD
     Route: 048
     Dates: start: 20200701, end: 20200710
  9. DEXTROSE 5% IN SODIUM CHLORIDE 0,9% [Concomitant]
     Indication: PROPHYLAXIS AGAINST DEHYDRATION
     Dosage: 2000 MILLILITER, QD
     Route: 042
     Dates: start: 20200603, end: 20200612
  10. TAFASITAMAB [Suspect]
     Active Substance: TAFASITAMAB
     Dosage: 12 MILLIGRAM/KILOGRAM, SINGLE
     Route: 042
     Dates: start: 20200615, end: 20200615
  11. TAFASITAMAB [Suspect]
     Active Substance: TAFASITAMAB
     Dosage: 12 MILLIGRAM/KILOGRAM, SINGLE
     Route: 042
     Dates: start: 20200708, end: 20200708
  12. OMEPRAZOLE. [Concomitant]
     Active Substance: OMEPRAZOLE
     Indication: GASTROINTESTINAL DISORDER PROPHYLAXIS
     Dosage: 40 MILLIGRAM, QD
     Route: 048
     Dates: start: 20200603, end: 20201104
  13. ENOXAPARIN [Concomitant]
     Active Substance: ENOXAPARIN
     Indication: THROMBOSIS PROPHYLAXIS
     Dosage: 80 MILLIGRAM, QD
     Route: 058
     Dates: start: 20200603, end: 20200612
  14. LORAZEPAM. [Concomitant]
     Active Substance: LORAZEPAM
     Indication: PROPHYLAXIS
     Dosage: 1 MILLIGRAM, QD
     Route: 048
     Dates: start: 20200603, end: 20200618
  15. ORALDINE [Concomitant]
     Indication: DENTAL DISORDER PROPHYLAXIS
     Dosage: 1 RINSE, TID
     Route: 048
     Dates: start: 20200603, end: 20201014

REACTIONS (2)
  - Cytomegalovirus infection [Recovered/Resolved]
  - Pneumocystis jirovecii pneumonia [Recovered/Resolved]

NARRATIVE: CASE EVENT DATE: 20200605
